FAERS Safety Report 9761403 (Version 1)
Quarter: 2013Q3

REPORT INFORMATION
  Report Type: Spontaneous
  Country: GB (occurrence: None)
  Receive Date: 20130808
  Receipt Date: 20130808
  Transmission Date: 20140515
  Serious: Yes (Life-Threatening, Hospitalization, Disabling, Other)
  Sender: FDA-Public Use
  Company Number: GER/UKI/13/0033617

PATIENT
  Age: 67 Year
  Sex: Female
  Weight: 56 kg

DRUGS (10)
  1. PIOGLITAZONE (PIOGLITAZONE) [Suspect]
     Indication: PRODUCT USED FOR UNKNOWN INDICATION
     Route: 048
     Dates: end: 20130624
  2. ADCAL-D3 (LEKOVIT CA) [Concomitant]
  3. ARIPIPRAZOLE [Concomitant]
  4. ATORVASTATIN [Concomitant]
  5. CREON (PANCREATIN) [Concomitant]
  6. FERROUS FUMARATE [Concomitant]
  7. FLUOXETINE [Concomitant]
  8. LEVOTHYROXINE [Concomitant]
  9. METFORMIN [Concomitant]
  10. RAMIPRIL [Concomitant]

REACTIONS (10)
  - Abdominal discomfort [None]
  - Renal failure acute [None]
  - Anaemia [None]
  - Bladder neoplasm [None]
  - Cells in urine [None]
  - Kidney enlargement [None]
  - Metastases to lung [None]
  - Pelvic mass [None]
  - Metastasis [None]
  - Malignant neoplasm of unknown primary site [None]
